FAERS Safety Report 8818427 (Version 2)
Quarter: 2012Q4

REPORT INFORMATION
  Report Type: 
  Country: SK (occurrence: SK)
  Receive Date: 20121001
  Receipt Date: 20121008
  Transmission Date: 20130627
  Serious: Yes (Death)
  Sender: FDA-Public Use
  Company Number: SK-ELI_LILLY_AND_COMPANY-SK201209007895

PATIENT
  Age: 84 Year
  Sex: Female

DRUGS (9)
  1. FORSTEO [Suspect]
     Indication: OSTEOPOROSIS POSTMENOPAUSAL
     Dosage: 20 ug, qd
     Route: 058
     Dates: start: 20120301
  2. ANOPYRIN [Concomitant]
     Dosage: 100 mg, UNK
  3. BETALOC ZOK [Concomitant]
     Dosage: 25 mg, UNK
  4. HYDROCHLOROTHIAZIDE [Concomitant]
  5. EUTHYROX [Concomitant]
     Indication: HYPOTHYROIDISM
     Dosage: 25 mg, UNK
  6. DORETA [Concomitant]
  7. METAMIZOL [Concomitant]
  8. CALCIUM [Concomitant]
     Dosage: 500 mg, UNK
  9. VIGANTOL [Concomitant]
     Indication: OSTEOPOROSIS

REACTIONS (1)
  - Cerebrovascular accident [Fatal]
